FAERS Safety Report 9776678 (Version 1)
Quarter: 2013Q4

REPORT INFORMATION
  Report Type: Spontaneous
  Country: US (occurrence: US)
  Receive Date: 20131220
  Receipt Date: 20131220
  Transmission Date: 20140711
  Serious: Yes (Hospitalization, Other)
  Sender: FDA-Public Use
  Company Number: US-RB-061692-13

PATIENT
  Age: 27 Year
  Sex: Female

DRUGS (1)
  1. SUBOXONE UNSPECIFIED [Suspect]
     Indication: DRUG DEPENDENCE
     Dosage: DOSING REGIMEN UNKNOWN
     Route: 060
     Dates: end: 2013

REACTIONS (3)
  - Lung infection [Recovered/Resolved]
  - Staphylococcal infection [Unknown]
  - Pain [Unknown]
